FAERS Safety Report 10839847 (Version 1)
Quarter: 2015Q1

REPORT INFORMATION
  Report Type: Report from Study
  Country: US (occurrence: US)
  Receive Date: 20150220
  Receipt Date: 20150220
  Transmission Date: 20150721
  Serious: No
  Sender: FDA-Public Use
  Company Number: US-ABBVIE-14P-163-1250072-00

PATIENT
  Age: 58 Year
  Sex: Male
  Weight: 124.85 kg

DRUGS (9)
  1. HUMIRA [Suspect]
     Active Substance: ADALIMUMAB
     Indication: PSORIATIC ARTHROPATHY
     Route: 058
     Dates: start: 201401, end: 201406
  2. AMLODIPINE [Concomitant]
     Active Substance: AMLODIPINE BESYLATE
     Indication: HYPERTENSION
  3. HUMIRA [Suspect]
     Active Substance: ADALIMUMAB
     Route: 058
     Dates: start: 201406
  4. LISINOPRIL. [Concomitant]
     Active Substance: LISINOPRIL
     Indication: HYPERTENSION
  5. SULFASALAZINE DELAYED-RELEASE [Concomitant]
     Active Substance: SULFASALAZINE
     Indication: PSORIATIC ARTHROPATHY
  6. LEFLUNOMIDE. [Concomitant]
     Active Substance: LEFLUNOMIDE
     Indication: PSORIATIC ARTHROPATHY
  7. NAPROXEN SODIUM. [Concomitant]
     Active Substance: NAPROXEN SODIUM
     Indication: PRODUCT USED FOR UNKNOWN INDICATION
  8. ALLOPURINOL. [Concomitant]
     Active Substance: ALLOPURINOL
     Indication: GOUT
  9. VENLAFAXINE [Concomitant]
     Active Substance: VENLAFAXINE HYDROCHLORIDE
     Indication: DEPRESSION

REACTIONS (2)
  - Drug effect decreased [Not Recovered/Not Resolved]
  - Device issue [Unknown]

NARRATIVE: CASE EVENT DATE: 201404
